FAERS Safety Report 8062177-9 (Version None)
Quarter: 2012Q1

REPORT INFORMATION
  Report Type: 
  Country: None (occurrence: None)
  Receive Date: 20120123
  Receipt Date: 20120119
  Transmission Date: 20120608
  Serious: Yes (Death, Hospitalization)
  Sender: FDA-Public Use
  Company Number: AU-B.I. PHARMACEUTICALS,INC./RIDGEFIELD-2011-AU-01259AU

PATIENT
  Age: 84 Year
  Sex: Female

DRUGS (10)
  1. ADALAT [Concomitant]
  2. ENALAPRIL MALEATE [Concomitant]
  3. PRADAXA [Suspect]
     Indication: ATRIAL FIBRILLATION
     Dosage: 220 MG
     Dates: start: 20110719, end: 20110819
  4. FUROSEMIDE [Concomitant]
  5. TEMAZEPAM [Concomitant]
  6. PRADAXA [Suspect]
     Indication: CEREBROVASCULAR ACCIDENT PROPHYLAXIS
  7. FOSAMAX PLUS D [Concomitant]
  8. NOTEN [Concomitant]
  9. LANOXIN [Concomitant]
  10. PRILOSEC [Concomitant]

REACTIONS (3)
  - CHEST PAIN [None]
  - GAIT DISTURBANCE [None]
  - ACUTE MYOCARDIAL INFARCTION [None]
